FAERS Safety Report 5692633-X (Version None)
Quarter: 2008Q2

REPORT INFORMATION
  Report Type: 
  Country: None (occurrence: None)
  Receive Date: 20080401
  Receipt Date: 20080317
  Transmission Date: 20081010
  Serious: Yes (Hospitalization)
  Sender: FDA-Public Use
  Company Number: 2008AL001715

PATIENT
  Age: 77 Year
  Sex: Male
  Weight: 95 kg

DRUGS (3)
  1. CARBIDOPA AND LEVODOPA [Suspect]
     Indication: PARKINSON'S DISEASE
     Dosage: 250 MG; QID; GT
  2. PRAMIPEXOLE DIHYDROCHLORIDE [Concomitant]
  3. ENTACAPONE [Concomitant]

REACTIONS (6)
  - CEREBRAL HAEMORRHAGE [None]
  - CONDITION AGGRAVATED [None]
  - FOOD INTERACTION [None]
  - MUSCLE RIGIDITY [None]
  - PARKINSON'S DISEASE [None]
  - VISUAL FIELD DEFECT [None]
